FAERS Safety Report 5705341-3 (Version None)
Quarter: 2008Q2

REPORT INFORMATION
  Report Type: 
  Country: None (occurrence: None)
  Receive Date: 20080410
  Receipt Date: 20080325
  Transmission Date: 20081010
  Serious: Yes (Death)
  Sender: FDA-Public Use
  Company Number: 2008JP001577

PATIENT
  Age: 52 Year
  Sex: Male

DRUGS (3)
  1. PROGRAF [Suspect]
     Indication: BONE MARROW TRANSPLANT
     Dosage: 0.03 MG/KG, CONTINUOUS, IV DRIP
     Route: 041
  2. METHOTREXATE [Concomitant]
  3. LENOGRASTIM (LENOGRASTIM) [Concomitant]

REACTIONS (1)
  - PNEUMONIA BACTERIAL [None]
